FAERS Safety Report 16377300 (Version 1)
Quarter: 2019Q3

REPORT INFORMATION
  Report Type: Spontaneous
  Country: US (occurrence: US)
  Receive Date: 20190530
  Receipt Date: 20190530
  Transmission Date: 20191004
  Serious: Yes (Other)
  Sender: FDA-Public Use
  Company Number: None

PATIENT
  Age: 72 Year
  Sex: Male
  Weight: 85.5 kg

DRUGS (3)
  1. ULTRAVIST [Suspect]
     Active Substance: IOPROMIDE
  2. ULTRAVIST [Concomitant]
     Active Substance: IOPROMIDE
     Dates: start: 20190529, end: 20190529
  3. ULTRAVIST [Concomitant]
     Active Substance: IOPROMIDE
     Dates: start: 20190523, end: 20190523

REACTIONS (2)
  - Product quality issue [None]
  - Contrast media reaction [None]

NARRATIVE: CASE EVENT DATE: 20190529
